FAERS Safety Report 12452616 (Version 2)
Quarter: 2016Q4

REPORT INFORMATION
  Report Type: Report from Study
  Country: KR (occurrence: KR)
  Receive Date: 20160609
  Receipt Date: 20161212
  Transmission Date: 20170207
  Serious: Yes (Death, Hospitalization, Other)
  Sender: FDA-Public Use
  Company Number: KR-OTSUKA-2016_012214

PATIENT
  Age: 76 Year
  Sex: Male

DRUGS (1)
  1. CILOSTAZOL. [Suspect]
     Active Substance: CILOSTAZOL
     Indication: PERIPHERAL ARTERIAL OCCLUSIVE DISEASE
     Dosage: UNK
     Route: 048

REACTIONS (5)
  - Mental impairment [Unknown]
  - Hypovolaemic shock [Fatal]
  - Nausea [Unknown]
  - Haematoma [Unknown]
  - Haemorrhage [Unknown]

NARRATIVE: CASE EVENT DATE: 20160320
